FAERS Safety Report 5954533 (Version 2)
Quarter: 2020Q3

REPORT INFORMATION
  Report Type: Report from Study
  Country: ES (occurrence: ES)
  Receive Date: 20060104
  Receipt Date: 20060203
  Transmission Date: 20201105
  Serious: Yes (Death, Life-Threatening)
  Sender: FDA-Public Use
  Company Number: ES-JNJFOC-20040700341

PATIENT
  Age: 29 Year
  Sex: Female

DRUGS (7)
  1. ASPIRIN. [Concomitant]
     Active Substance: ASPIRIN
     Route: 048
  2. ABCIXIMAB [Suspect]
     Active Substance: ABCIXIMAB
     Indication: ISCHAEMIC STROKE
     Route: 042
  3. ENOXAPARIN SODIUM. [Concomitant]
     Active Substance: ENOXAPARIN SODIUM
     Route: 058
  4. ABCIXIMAB [Suspect]
     Active Substance: ABCIXIMAB
     Indication: ISCHAEMIC STROKE
     Route: 042
  5. PLACEBO [Suspect]
     Active Substance: UNSPECIFIED INGREDIENT
     Indication: ISCHAEMIC STROKE
     Route: 042
  6. VITAMIN K [Concomitant]
     Active Substance: PHYTONADIONE
  7. PLACEBO [Suspect]
     Active Substance: UNSPECIFIED INGREDIENT
     Indication: ISCHAEMIC STROKE
     Route: 042

REACTIONS (14)
  - Haemorrhagic transformation stroke [Not Recovered/Not Resolved]
  - Respiratory tract infection [Fatal]
  - Speech disorder [None]
  - Affect lability [None]
  - Restlessness [None]
  - Areflexia [None]
  - Hypotension [None]
  - Depressed level of consciousness [None]
  - Asthenia [None]
  - Cerebral artery occlusion [None]
  - Headache [None]
  - Vomiting [None]
  - Sepsis [Fatal]
  - Hyperhidrosis [None]

NARRATIVE: CASE EVENT DATE: 20040628
